FAERS Safety Report 10573127 (Version 1)
Quarter: 2014Q4

REPORT INFORMATION
  Report Type: Spontaneous
  Country: IT (occurrence: None)
  Receive Date: 20141106
  Receipt Date: 20141106
  Transmission Date: 20150529
  Serious: Yes (Hospitalization)
  Sender: FDA-Public Use
  Company Number: 2602764

PATIENT
  Age: 48 Year
  Sex: Female

DRUGS (5)
  1. METHOTREXATE [Suspect]
     Active Substance: METHOTREXATE
     Indication: SCLERODERMA
     Dosage: CYCLICAL
     Route: 030
     Dates: start: 20130101, end: 20141020
  2. FOLINA [Concomitant]
     Active Substance: FOLIC ACID
  3. MEDROL [Suspect]
     Active Substance: METHYLPREDNISOLONE
     Indication: SCLERODERMA
     Dosage: CYCLICAL
     Route: 048
     Dates: start: 20120101, end: 20141020
  4. MABTHERA [Suspect]
     Active Substance: RITUXIMAB
     Indication: SCLERODERMA
     Dosage: CYCLICAL
     Route: 042
     Dates: start: 20140101, end: 20141020
  5. ESOMEPRAZOLE SODIUM. [Concomitant]
     Active Substance: ESOMEPRAZOLE SODIUM

REACTIONS (1)
  - Abdominal pain upper [None]

NARRATIVE: CASE EVENT DATE: 20141020
